FAERS Safety Report 4443311-6 (Version None)
Quarter: 2004Q3

REPORT INFORMATION
  Report Type: 
  Country: None (occurrence: None)
  Receive Date: 20040907
  Receipt Date: 20040907
  Transmission Date: 20050211
  Serious: Yes (Hospitalization)
  Sender: FDA-Public Use
  Company Number: None

PATIENT
  Age: 73 Year
  Sex: Male
  Weight: 80.3 kg

DRUGS (4)
  1. ALLOPURINOL [Suspect]
     Dosage: PRIVATE MD, BY MOUTH
     Route: 048
     Dates: start: 20040211, end: 20040412
  2. METFORMIN HCL [Concomitant]
  3. ATENOLOL [Concomitant]
  4. LISINOPRIL [Concomitant]

REACTIONS (1)
  - RASH [None]
